FAERS Safety Report 6345352-0 (Version None)
Quarter: 2009Q3

REPORT INFORMATION
  Report Type: 
  Country: None (occurrence: None)
  Receive Date: 20090909
  Receipt Date: 20090826
  Transmission Date: 20100115
  Serious: Yes (Hospitalization, Other)
  Sender: FDA-Public Use
  Company Number: JP-WYE-H10848409

PATIENT
  Age: 72 Year
  Sex: Male
  Weight: 65 kg

DRUGS (3)
  1. AMIODARONE [Suspect]
     Indication: SUICIDE ATTEMPT
     Dosage: 4 GRAMS
     Route: 048
  2. AMIODARONE [Suspect]
     Dosage: 114 TABLETS [11.4 G] ONCE
     Route: 048
  3. PHENOBARBITAL [Concomitant]

REACTIONS (3)
  - INTENTIONAL OVERDOSE [None]
  - LOSS OF CONSCIOUSNESS [None]
  - SUICIDE ATTEMPT [None]
